FAERS Safety Report 8472596-4 (Version None)
Quarter: 2012Q2

REPORT INFORMATION
  Report Type: 
  Country: None (occurrence: None)
  Receive Date: 20120627
  Receipt Date: 20110802
  Transmission Date: 20120825
  Serious: No
  Sender: FDA-Public Use
  Company Number: US-AMGEN-USASP2011039618

PATIENT
  Age: 69 Year
  Sex: Female
  Weight: 119.73 kg

DRUGS (1)
  1. PROCRIT [Suspect]
     Indication: RENAL FAILURE CHRONIC
     Dosage: 20000 IU, Q2WK
     Dates: start: 20110627, end: 20110725

REACTIONS (1)
  - MYALGIA [None]
